FAERS Safety Report 16810055 (Version 1)
Quarter: 2019Q3

REPORT INFORMATION
  Report Type: Spontaneous
  Country: US (occurrence: US)
  Receive Date: 20190916
  Receipt Date: 20190916
  Transmission Date: 20191005
  Serious: Yes (Hospitalization)
  Sender: FDA-Public Use
  Company Number: US-PFIZER INC-2019391636

PATIENT
  Age: 72 Year
  Sex: Male
  Weight: 161.4 kg

DRUGS (2)
  1. TIKOSYN [Suspect]
     Active Substance: DOFETILIDE
     Indication: ATRIAL FIBRILLATION
     Dosage: 250 MG, 2X/DAY
     Route: 048
     Dates: start: 20121203
  2. TIKOSYN [Suspect]
     Active Substance: DOFETILIDE
     Dosage: 500 MG, UNK
     Dates: start: 20190706

REACTIONS (2)
  - Drug ineffective [Recovered/Resolved]
  - Product prescribing error [Unknown]
